FAERS Safety Report 8505757-6 (Version None)
Quarter: 2012Q3

REPORT INFORMATION
  Report Type: 
  Country: None (occurrence: None)
  Receive Date: 20120712
  Receipt Date: 20120706
  Transmission Date: 20120928
  Serious: Yes (Hospitalization, Other)
  Sender: FDA-Public Use
  Company Number: US-BAYER-201039431NA

PATIENT
  Sex: Female
  Weight: 136.5 kg

DRUGS (8)
  1. YAZ [Suspect]
     Indication: ENDOMETRIOSIS
     Dosage: UNK
     Dates: start: 20070901, end: 20091001
  2. PROZAC [Concomitant]
     Dosage: UNK
     Dates: start: 20000101
  3. FLUOXETINE [Concomitant]
     Dosage: 20 MG, QD
     Route: 048
  4. YASMIN [Suspect]
     Indication: CONTRACEPTION
     Dosage: UNK UNK, QD
     Route: 048
     Dates: start: 20060101, end: 20060101
  5. YAZ [Suspect]
     Indication: CONTRACEPTION
     Dosage: UNK UNK, QD
     Route: 048
     Dates: start: 20061001, end: 20061201
  6. YASMIN [Suspect]
     Indication: ENDOMETRIOSIS
  7. CIPROFLOXACIN HCL [Concomitant]
     Dosage: 500 MG, UNK
     Route: 048
  8. PROAIR HFA [Concomitant]
     Indication: WHEEZING
     Dosage: 2 PUFFS EVERY 4 HOUS

REACTIONS (4)
  - GALLBLADDER DISORDER [None]
  - PAIN [None]
  - ANXIETY [None]
  - CHOLECYSTITIS CHRONIC [None]
